FAERS Safety Report 9306039 (Version 2)
Quarter: 2013Q3

REPORT INFORMATION
  Report Type: Spontaneous
  Country: US (occurrence: None)
  Receive Date: 20130520
  Receipt Date: 20130701
  Transmission Date: 20140515
  Serious: Yes (Death)
  Sender: FDA-Public Use
  Company Number: 2013US001603

PATIENT
  Age: 51 Year
  Sex: Female

DRUGS (1)
  1. ICLUSIG [Suspect]
     Indication: ACUTE LYMPHOCYTIC LEUKAEMIA
     Route: 048
     Dates: start: 20130201

REACTIONS (3)
  - Death [None]
  - Disease progression [None]
  - Acute lymphocytic leukaemia [None]
